FAERS Safety Report 6707282-1 (Version None)
Quarter: 2010Q2

REPORT INFORMATION
  Report Type: 
  Country: None (occurrence: None)
  Receive Date: 20100503
  Receipt Date: 20090609
  Transmission Date: 20101027
  Serious: No
  Sender: FDA-Public Use
  Company Number: US-ASTRAZENECA-2009UW14799

PATIENT
  Age: 46 Year
  Sex: Female
  Weight: 104.3 kg

DRUGS (3)
  1. NEXIUM [Suspect]
     Indication: GASTROOESOPHAGEAL REFLUX DISEASE
     Route: 048
     Dates: start: 20090201, end: 20090420
  2. LUVOX CR [Suspect]
     Indication: ANXIETY
     Route: 048
     Dates: start: 20090407
  3. LUVOX CR [Suspect]
     Indication: PANIC ATTACK
     Route: 048
     Dates: start: 20090407

REACTIONS (3)
  - GLOSSODYNIA [None]
  - ORAL PRURITUS [None]
  - SWOLLEN TONGUE [None]
